FAERS Safety Report 7770837-X (Version None)
Quarter: 2011Q3

REPORT INFORMATION
  Report Type: 
  Country: None (occurrence: None)
  Receive Date: 20110922
  Receipt Date: 20110531
  Transmission Date: 20111222
  Serious: No
  Sender: FDA-Public Use
  Company Number: US-ASTRAZENECA-2011SE08145

PATIENT
  Age: 43 Year
  Sex: Male
  Weight: 65.8 kg

DRUGS (4)
  1. SEROQUEL [Suspect]
     Route: 048
     Dates: start: 20060101
  2. SEROQUEL [Suspect]
     Indication: SUBDURAL HAEMORRHAGE
     Route: 048
     Dates: start: 20060101
  3. SEROQUEL [Suspect]
     Indication: POST-TRAUMATIC STRESS DISORDER
     Route: 048
     Dates: start: 20060101
  4. SEROQUEL [Suspect]
     Route: 048
     Dates: start: 20060101

REACTIONS (6)
  - OFF LABEL USE [None]
  - DRUG DOSE OMISSION [None]
  - AGITATION [None]
  - IMPRISONMENT [None]
  - GRIEF REACTION [None]
  - AGGRESSION [None]
